FAERS Safety Report 4439072-7 (Version None)
Quarter: 2004Q3

REPORT INFORMATION
  Report Type: 
  Country: None (occurrence: None)
  Receive Date: 20040901
  Receipt Date: 20040819
  Transmission Date: 20050211
  Serious: Yes (Other)
  Sender: FDA-Public Use
  Company Number: IT-GLAXOSMITHKLINE-B0343770A

PATIENT
  Age: 59 Year
  Sex: Female

DRUGS (8)
  1. AUGMENTIN '125' [Suspect]
     Dosage: 1G PER DAY
     Route: 048
     Dates: start: 20040729, end: 20040802
  2. CHOLECALCIFEROL [Concomitant]
  3. LANOXIN [Concomitant]
     Route: 048
  4. TRAVATAN [Concomitant]
  5. COVERSYL [Concomitant]
     Route: 048
  6. DELTACORTENE [Concomitant]
     Route: 048
  7. LASIX [Concomitant]
     Route: 048
  8. EUTIROX [Concomitant]
     Route: 048

REACTIONS (2)
  - ANGIONEUROTIC OEDEMA [None]
  - URTICARIA [None]
